FAERS Safety Report 7789570-3 (Version None)
Quarter: 2011Q3

REPORT INFORMATION
  Report Type: 
  Country: None (occurrence: None)
  Receive Date: 20110930
  Receipt Date: 20110923
  Transmission Date: 20111222
  Serious: Yes (Other)
  Sender: FDA-Public Use
  Company Number: FR-JNJFOC-20110710255

PATIENT
  Sex: Female
  Weight: 60 kg

DRUGS (6)
  1. ATARAX [Concomitant]
     Indication: ANXIOLYTIC THERAPY
     Route: 048
     Dates: start: 20061218
  2. TEGRETOL [Concomitant]
     Indication: DRUG THERAPY
     Route: 048
     Dates: start: 20020101
  3. AMITRIPTYLINE HCL [Concomitant]
     Indication: MAJOR DEPRESSION
     Route: 048
     Dates: start: 20020101
  4. RISPERDAL [Suspect]
     Indication: SCHIZOPHRENIA
     Route: 048
     Dates: start: 20100503, end: 20101209
  5. RISPERDAL [Suspect]
     Indication: SCHIZOAFFECTIVE DISORDER
     Route: 048
     Dates: start: 20100503, end: 20101209
  6. VASTAREL [Concomitant]
     Indication: PRODUCT USED FOR UNKNOWN INDICATION
     Route: 065

REACTIONS (2)
  - SEBORRHOEIC DERMATITIS [None]
  - ECZEMA [None]
